FAERS Safety Report 5906236-2 (Version None)
Quarter: 2008Q4

REPORT INFORMATION
  Report Type: 
  Country: None (occurrence: None)
  Receive Date: 20081002
  Receipt Date: 20080918
  Transmission Date: 20090506
  Serious: Yes (Life-Threatening)
  Sender: FDA-Public Use
  Company Number: NL-BAYER-200827319GPV

PATIENT
  Age: 53 Year
  Sex: Male

DRUGS (3)
  1. NAPROXEN [Suspect]
     Indication: DRUG USE FOR UNKNOWN INDICATION
  2. SERTRALINE [Interacting]
     Indication: DEPRESSION
  3. GENERAL ANESTHESIA [Concomitant]
     Indication: SURGERY

REACTIONS (1)
  - POST PROCEDURAL HAEMORRHAGE [None]
